FAERS Safety Report 8547864-8 (Version None)
Quarter: 2012Q3

REPORT INFORMATION
  Report Type: 
  Country: None (occurrence: None)
  Receive Date: 20120727
  Receipt Date: 20120720
  Transmission Date: 20120928
  Serious: Yes (Other)
  Sender: FDA-Public Use
  Company Number: US-ASTRAZENECA-2010SE10643

PATIENT
  Age: 55 Year
  Sex: Female

DRUGS (3)
  1. SEROQUEL [Suspect]
     Route: 048
  2. SEROQUEL [Suspect]
     Route: 048
  3. SEROQUEL [Suspect]
     Dosage: THREE PILLS A DAY IF REQUIRED
     Route: 048

REACTIONS (6)
  - FEELING ABNORMAL [None]
  - LIMB INJURY [None]
  - FALL [None]
  - INSOMNIA [None]
  - EPILEPSY [None]
  - HEAD INJURY [None]
